FAERS Safety Report 14963708 (Version 5)
Quarter: 2020Q1

REPORT INFORMATION
  Report Type: Spontaneous
  Country: DE (occurrence: DE)
  Receive Date: 20180601
  Receipt Date: 20200103
  Transmission Date: 20200409
  Serious: Yes (Other)
  Sender: FDA-Public Use
  Company Number: DE-MYLANLABS-2018M1035191

PATIENT
  Age: 29 Year
  Sex: Female

DRUGS (20)
  1. MIDAZOLAM HYDROCHLORIDE. [Concomitant]
     Active Substance: MIDAZOLAM HYDROCHLORIDE
     Indication: PRODUCT USED FOR UNKNOWN INDICATION
     Dosage: UNK
     Route: 065
  2. LEVETIRACETAM. [Suspect]
     Active Substance: LEVETIRACETAM
     Indication: EPILEPSY
     Dosage: UNK, BID
     Route: 065
     Dates: start: 201612
  3. TOPIRAMATE. [Concomitant]
     Active Substance: TOPIRAMATE
     Indication: PRODUCT USED FOR UNKNOWN INDICATION
     Dosage: UNK
     Route: 065
  4. VALPROIC ACID. [Concomitant]
     Active Substance: VALPROIC ACID
     Indication: PRODUCT USED FOR UNKNOWN INDICATION
     Dosage: UNK
  5. CARBAMAZEPINE. [Concomitant]
     Active Substance: CARBAMAZEPINE
     Indication: PRODUCT USED FOR UNKNOWN INDICATION
     Dosage: UNK
  6. FRISIUM [Concomitant]
     Active Substance: CLOBAZAM
     Indication: PRODUCT USED FOR UNKNOWN INDICATION
     Dosage: UNK
     Route: 065
  7. ZONISAMIDE. [Concomitant]
     Active Substance: ZONISAMIDE
     Indication: PRODUCT USED FOR UNKNOWN INDICATION
     Dosage: UNK
     Route: 065
  8. LORAZEPAM. [Concomitant]
     Active Substance: LORAZEPAM
     Indication: PRODUCT USED FOR UNKNOWN INDICATION
     Dosage: UNK
  9. LEVETIRACETAM. [Suspect]
     Active Substance: LEVETIRACETAM
     Indication: STATUS EPILEPTICUS
     Dosage: 4 G, QD, 2X/DAY (BID)
     Route: 065
     Dates: start: 20171215, end: 201712
  10. LEVETIRACETAM. [Suspect]
     Active Substance: LEVETIRACETAM
     Dosage: UNK, QD, (UPTO 12 G/DAY)
  11. LACOSAMIDE. [Concomitant]
     Active Substance: LACOSAMIDE
     Indication: PRODUCT USED FOR UNKNOWN INDICATION
     Dosage: UNK
     Route: 065
  12. LEVETIRACETAM. [Suspect]
     Active Substance: LEVETIRACETAM
     Dosage: 10 G, QD, 10 G DAILY DOSE, 2X/DAY (BID)
     Route: 065
     Dates: start: 20180102, end: 20180105
  13. LEVETIRACETAM. [Suspect]
     Active Substance: LEVETIRACETAM
     Dosage: 16 GRAM, QD, (8 GRAM, 2X/DAY (BID))
     Dates: start: 201612
  14. OXCARBAZEPINE. [Concomitant]
     Active Substance: OXCARBAZEPINE
     Indication: PRODUCT USED FOR UNKNOWN INDICATION
     Dosage: UNK
     Route: 065
  15. LEVETIRACETAM. [Suspect]
     Active Substance: LEVETIRACETAM
     Dosage: UNK (POST HOSPITALIZATION), QD
     Route: 065
  16. LAMOTRIGINE. [Concomitant]
     Active Substance: LAMOTRIGINE
     Indication: PRODUCT USED FOR UNKNOWN INDICATION
     Dosage: UNK
  17. LEVETIRACETAM. [Suspect]
     Active Substance: LEVETIRACETAM
     Dosage: 8 G, QD, 4 G, BID, ( 2X/DAY (BID))
     Route: 065
     Dates: start: 20171231, end: 20171231
  18. LEVETIRACETAM. [Suspect]
     Active Substance: LEVETIRACETAM
     Dosage: 12 G, QD, 2X/DAY (BID)
     Route: 065
     Dates: start: 20180101, end: 20180101
  19. LEVETIRACETAM. [Suspect]
     Active Substance: LEVETIRACETAM
     Dosage: 2 DOSAGE FORM, QD, POST HOSPITALIZATION
     Route: 065
  20. LEVETIRACETAM. [Suspect]
     Active Substance: LEVETIRACETAM
     Dosage: 16 GRAM, QD, (8 GRAM, 2X/DAY (BID))
     Dates: start: 20171215

REACTIONS (6)
  - Overdose [Unknown]
  - Focal dyscognitive seizures [Unknown]
  - Status epilepticus [Unknown]
  - Gestational diabetes [Unknown]
  - Maternal exposure during pregnancy [Recovered/Resolved]
  - Off label use [Unknown]

NARRATIVE: CASE EVENT DATE: 2017
